FAERS Safety Report 11840090 (Version 1)
Quarter: 2015Q4

REPORT INFORMATION
  Report Type: Spontaneous
  Country: US (occurrence: None)
  Receive Date: 20151215
  Receipt Date: 20151215
  Transmission Date: 20160305
  Serious: Yes (Other)
  Sender: FDA-Public Use
  Company Number: None

PATIENT
  Age: 35 Year
  Sex: Female
  Weight: 93.44 kg

DRUGS (1)
  1. PHENTERMINE. [Suspect]
     Active Substance: PHENTERMINE
     Indication: WEIGHT DECREASED
     Dosage: PHENTERMINE, ONCE DAILY, TAKEN BY MOUTH
     Route: 048
     Dates: start: 20151213

REACTIONS (2)
  - Anxiety [None]
  - Weight increased [None]

NARRATIVE: CASE EVENT DATE: 20151213
